FAERS Safety Report 7677514-4 (Version None)
Quarter: 2011Q3

REPORT INFORMATION
  Report Type: 
  Country: None (occurrence: None)
  Receive Date: 20110810
  Receipt Date: 20110810
  Transmission Date: 20111222
  Serious: Yes (Death)
  Sender: FDA-Public Use
  Company Number: None

PATIENT
  Age: 59 Year
  Sex: Female

DRUGS (1)
  1. ALBUTEROL SULFATE [Suspect]
     Indication: BRONCHIECTASIS
     Dosage: 0.083% 3 TIMES PER DAY VIA NEBULIZER
     Dates: start: 20101012, end: 20101020

REACTIONS (2)
  - FALL [None]
  - DYSPNOEA [None]
